FAERS Safety Report 9128796 (Version 2)
Quarter: 2013Q2

REPORT INFORMATION
  Report Type: Spontaneous
  Country: US (occurrence: US)
  Receive Date: 20130125
  Receipt Date: 20130402
  Transmission Date: 20140414
  Serious: Yes (Hospitalization)
  Sender: FDA-Public Use
  Company Number: US-BAYER-2013-007962

PATIENT
  Age: 65 Year
  Sex: Female

DRUGS (10)
  1. BETASERON [Suspect]
     Indication: RELAPSING-REMITTING MULTIPLE SCLEROSIS
     Dosage: 0.3 MG, QOD
     Route: 058
     Dates: start: 1999
  2. AZOR [ALPRAZOLAM] [Concomitant]
  3. ANTIHYPERTENSIVES [Concomitant]
     Indication: HYPERTENSION
  4. VITAMIN B12 [Concomitant]
     Indication: SUPPLEMENTATION THERAPY
  5. VITAMIN D [Concomitant]
  6. LYSINE [Concomitant]
  7. PLAVIX [Concomitant]
  8. LIPITOR [Concomitant]
  9. METOPROLOL [Concomitant]
  10. ANTIDEPRESSANTS [Concomitant]

REACTIONS (3)
  - Coronary artery occlusion [None]
  - Dizziness [None]
  - Syncope [None]
